FAERS Safety Report 5688831-1 (Version None)
Quarter: 2008Q1

REPORT INFORMATION
  Report Type: 
  Country: None (occurrence: None)
  Receive Date: 20080331
  Receipt Date: 20020429
  Transmission Date: 20080703
  Serious: Yes (Death, Other)
  Sender: FDA-Public Use
  Company Number: FR-ROCHE-312404

PATIENT
  Age: 42 Year
  Sex: Female

DRUGS (3)
  1. VALIUM [Suspect]
     Indication: AGITATION
     Route: 030
     Dates: start: 19990315, end: 19990315
  2. TIAPRIDAL [Suspect]
     Indication: AGITATION
     Route: 030
     Dates: start: 19990315, end: 19990315
  3. SOLIAN [Suspect]
     Indication: DRUG USE FOR UNKNOWN INDICATION
     Route: 048

REACTIONS (2)
  - DEATH [None]
  - NEUROLEPTIC MALIGNANT SYNDROME [None]
